FAERS Safety Report 12876710 (Version 1)
Quarter: 2016Q4

REPORT INFORMATION
  Report Type: Spontaneous
  Country: US (occurrence: US)
  Receive Date: 20161024
  Receipt Date: 20161024
  Transmission Date: 20170207
  Serious: Yes (Other)
  Sender: FDA-Public Use
  Company Number: US-ELI_LILLY_AND_COMPANY-US201610003554

PATIENT

DRUGS (2)
  1. FOLFIRI [Concomitant]
     Active Substance: FLUOROURACIL\IRINOTECAN\LEUCOVORIN
  2. CYRAMZA [Suspect]
     Active Substance: RAMUCIRUMAB
     Indication: COLORECTAL CANCER METASTATIC
     Dosage: 8 MG/KG, CYCLICAL
     Route: 065

REACTIONS (1)
  - Ascites [Not Recovered/Not Resolved]

NARRATIVE: CASE EVENT DATE: 20161011
